FAERS Safety Report 22312568 (Version 5)
Quarter: 2023Q4

REPORT INFORMATION
  Report Type: Spontaneous
  Country: US (occurrence: US)
  Receive Date: 20230512
  Receipt Date: 20231220
  Transmission Date: 20240110
  Serious: Yes (Other)
  Sender: FDA-Public Use
  Company Number: US-BAUSCHBL-2023BNL003972

PATIENT
  Sex: Female

DRUGS (9)
  1. LATANOPROST [Suspect]
     Active Substance: LATANOPROST
     Indication: Intraocular pressure test
     Dosage: ONCE IN THE EVENING
     Route: 065
     Dates: start: 2015
  2. LATANOPROST [Suspect]
     Active Substance: LATANOPROST
     Dosage: ONCE IN THE EVENING
     Route: 065
     Dates: start: 2015
  3. MINERALS\VITAMINS [Suspect]
     Active Substance: MINERALS\VITAMINS
     Indication: Macular degeneration
     Route: 048
     Dates: start: 202304
  4. NYSTATIN [Concomitant]
     Active Substance: NYSTATIN
     Indication: Blood cholesterol
     Dosage: ON AND OFF FOR A COUPLE OF YEARS
  5. PRESERVISION AREDS 2 EYE VITAMIN MINERAL SUPPLEMENT [Concomitant]
     Indication: Product used for unknown indication
     Dates: start: 202305
  6. ROSUVASTATIN [Concomitant]
     Active Substance: ROSUVASTATIN
     Indication: Product used for unknown indication
  7. VITAMIN D3 [Concomitant]
     Active Substance: CHOLECALCIFEROL
     Indication: Product used for unknown indication
  8. VITAMIN D3 [Concomitant]
     Active Substance: CHOLECALCIFEROL
  9. DIETARY SUPPLEMENT\HERBALS [Concomitant]
     Active Substance: DIETARY SUPPLEMENT\HERBALS
     Indication: Product used for unknown indication

REACTIONS (8)
  - Macular degeneration [Recovered/Resolved]
  - Cystoid macular oedema [Recovered/Resolved]
  - Diverticulitis [Unknown]
  - Abdominal pain [Unknown]
  - Abdominal discomfort [Unknown]
  - Intraocular pressure increased [Recovered/Resolved]
  - Alopecia [Unknown]
  - Product dose omission issue [Unknown]

NARRATIVE: CASE EVENT DATE: 20230101
